FAERS Safety Report 21789793 (Version 3)
Quarter: 2023Q1

REPORT INFORMATION
  Report Type: Spontaneous
  Country: RU (occurrence: RU)
  Receive Date: 20221228
  Receipt Date: 20230103
  Transmission Date: 20230417
  Serious: Yes (Death, Life-Threatening, Hospitalization, Other)
  Sender: FDA-Public Use
  Company Number: RU-PFIZER INC-PV202200130372

PATIENT
  Age: 48 Year
  Sex: Female
  Weight: 51 kg

DRUGS (2)
  1. TRASTUZUMAB [Suspect]
     Active Substance: TRASTUZUMAB
     Indication: Hormone receptor negative HER2 positive breast cancer
     Dosage: UNK
  2. IXEMPRA [Concomitant]
     Active Substance: IXABEPILONE
     Indication: Hormone receptor negative HER2 positive breast cancer
     Dosage: 40 MG/M2
     Route: 041
     Dates: start: 20221209, end: 20221209

REACTIONS (8)
  - Death [Fatal]
  - Sepsis [Not Recovered/Not Resolved]
  - Neutropenia [Unknown]
  - Diarrhoea [Not Recovered/Not Resolved]
  - Asthenia [Not Recovered/Not Resolved]
  - Rash vesicular [Not Recovered/Not Resolved]
  - Peripheral swelling [Not Recovered/Not Resolved]
  - Neoplasm progression [Unknown]

NARRATIVE: CASE EVENT DATE: 20221215
